FAERS Safety Report 8942305 (Version 1)
Quarter: 2012Q4

REPORT INFORMATION
  Report Type: 
  Country: US (occurrence: None)
  Receive Date: 20121123
  Receipt Date: 20121123
  Transmission Date: 20130627
  Serious: Yes (Other)
  Sender: FDA-Public Use
  Company Number: 2012110059

PATIENT
  Age: 21 Year
  Sex: Male

DRUGS (10)
  1. FELBAMATE [Suspect]
     Indication: COMPLEX PARTIAL SEIZURES
     Dosage: (1200 mg, 2 in 1 D)
     Route: 048
     Dates: start: 2009
  2. FELBATOL (FELBAMATE) [Concomitant]
  3. TEGRETOL (CARBAMAZEPINE) [Concomitant]
  4. NEURONTIN (GABAPENTIN) [Concomitant]
  5. CARBAMAZEPINE (CARBAMAZEPINE) [Concomitant]
  6. TRILEPTAL (OXCARBAZEPINE) [Concomitant]
  7. KEPPRA (LEVETIRACETAM) [Concomitant]
  8. DEPAKOTE (DIVALPROEX SODIUM) [Concomitant]
  9. MYSOLINE (PRIMIDONE) [Concomitant]
  10. TOPAMAX (TOPIRAMATE) [Concomitant]

REACTIONS (6)
  - Convulsion [None]
  - Product substitution issue [None]
  - Confusional state [None]
  - Unresponsive to stimuli [None]
  - Staring [None]
  - Tremor [None]
